FAERS Safety Report 23812401 (Version 2)
Quarter: 2024Q2

REPORT INFORMATION
  Report Type: Spontaneous
  Country: GH (occurrence: None)
  Receive Date: 20240503
  Receipt Date: 20240515
  Transmission Date: 20240715
  Serious: Yes (Death)
  Sender: FDA-Public Use
  Company Number: GH-ROCHE-3551408

PATIENT
  Sex: Female

DRUGS (1)
  1. OCREVUS [Suspect]
     Active Substance: OCRELIZUMAB
     Indication: Product used for unknown indication
     Route: 065
     Dates: end: 20240307

REACTIONS (2)
  - Cardiac arrest [Fatal]
  - Lower respiratory tract infection [Fatal]
